FAERS Safety Report 7632624-2 (Version None)
Quarter: 2011Q3

REPORT INFORMATION
  Report Type: 
  Country: None (occurrence: None)
  Receive Date: 20110725
  Receipt Date: 20101101
  Transmission Date: 20111222
  Serious: No
  Sender: FDA-Public Use
  Company Number: US-BRISTOL-MYERS SQUIBB COMPANY-15362486

PATIENT
  Age: 60 Year
  Sex: Male
  Weight: 77 kg

DRUGS (7)
  1. DIGOXIN [Concomitant]
  2. METHIMAZOLE [Concomitant]
  3. AMLODIPINE BESYLATE [Concomitant]
  4. CLONIDINE [Concomitant]
  5. METOPROLOL TARTRATE [Concomitant]
  6. COUMADIN [Suspect]
  7. PLAVIX [Concomitant]
     Dates: start: 20100101

REACTIONS (1)
  - FEELING HOT [None]
